FAERS Safety Report 22616454 (Version 2)
Quarter: 2023Q2

REPORT INFORMATION
  Report Type: Spontaneous
  Country: JP (occurrence: None)
  Receive Date: 20230619
  Receipt Date: 20230627
  Transmission Date: 20230721
  Serious: Yes (Death)
  Sender: FDA-Public Use
  Company Number: 2023A106480

PATIENT
  Age: 72 Year
  Sex: Male

DRUGS (2)
  1. IMFINZI [Suspect]
     Active Substance: DURVALUMAB
     Indication: Hepatocellular carcinoma
     Dosage: DOSE UNKNOWN
     Route: 041
     Dates: start: 20230418, end: 20230418
  2. IMJUDO [Suspect]
     Active Substance: TREMELIMUMAB-ACTL
     Indication: Hepatocellular carcinoma
     Dosage: DOSE UNKNOWN300.0MG UNKNOWN
     Route: 041
     Dates: start: 20230418, end: 20230418

REACTIONS (2)
  - Death [Fatal]
  - Rash [Unknown]

NARRATIVE: CASE EVENT DATE: 20230427
